FAERS Safety Report 7825097-8 (Version None)
Quarter: 2011Q4

REPORT INFORMATION
  Report Type: 
  Country: None (occurrence: None)
  Receive Date: 20111019
  Receipt Date: 20110328
  Transmission Date: 20120403
  Serious: No
  Sender: FDA-Public Use
  Company Number: US-BRISTOL-MYERS SQUIBB COMPANY-15080567

PATIENT
  Age: 88 Year
  Sex: Female

DRUGS (1)
  1. AVALIDE [Suspect]
     Dosage: 1 DF= 150/12.5MG. CHANGED TO 300/25 (UNITS NOT SPECIFIED) ONCE DAILY.

REACTIONS (2)
  - DEPRESSED MOOD [None]
  - MALAISE [None]
